FAERS Safety Report 8283193-8 (Version None)
Quarter: 2012Q2

REPORT INFORMATION
  Report Type: 
  Country: None (occurrence: None)
  Receive Date: 20120413
  Receipt Date: 20120411
  Transmission Date: 20120825
  Serious: Yes (Disabling)
  Sender: FDA-Public Use
  Company Number: FR-MERCK-1202FRA00006

PATIENT
  Age: 70 Year
  Sex: Female

DRUGS (6)
  1. LEVOTHYROXINE SODIUM [Concomitant]
     Indication: THYROID DISORDER
     Route: 048
  2. CELIPROLOL HYDROCHLORIDE [Concomitant]
     Indication: HYPERTENSION
     Route: 048
  3. HYDROCHLOROTHIAZIDE AND IRBESARTAN [Concomitant]
     Indication: HYPERTENSION
     Route: 048
  4. NOROXIN [Suspect]
     Indication: CYSTITIS
     Route: 048
     Dates: start: 20110801, end: 20110801
  5. ROSUVASTATIN CALCIUM [Concomitant]
     Indication: DYSLIPIDAEMIA
     Route: 048
     Dates: start: 20080101, end: 20110901
  6. MANIDIPINE HYDROCHLORIDE [Concomitant]
     Indication: HYPERTENSION
     Route: 048

REACTIONS (4)
  - RHEUMATOID ARTHRITIS [None]
  - MUSCULOSKELETAL PAIN [None]
  - POLYMYALGIA RHEUMATICA [None]
  - TENDONITIS [None]
